FAERS Safety Report 25903177 (Version 1)
Quarter: 2025Q4

REPORT INFORMATION
  Report Type: Report from Study
  Country: TW (occurrence: TW)
  Receive Date: 20251009
  Receipt Date: 20251009
  Transmission Date: 20260118
  Serious: Yes (Hospitalization, Other)
  Sender: SANOFI AVENTIS
  Company Number: TW-SA-2025SA295573

PATIENT
  Age: 69 Year
  Sex: Male

DRUGS (1)
  1. AGALSIDASE BETA [Suspect]
     Active Substance: AGALSIDASE BETA
     Indication: Fabry^s disease
     Dosage: 70 MG, QOW (2 VIALS, 35MG/VIAL)
     Route: 041
     Dates: start: 20250930

REACTIONS (4)
  - Systolic dysfunction [Unknown]
  - Pulmonary oedema [Unknown]
  - Dyspnoea [Unknown]
  - Pleural effusion [Recovering/Resolving]

NARRATIVE: CASE EVENT DATE: 20251001
